FAERS Safety Report 11817728 (Version 2)
Quarter: 2017Q2

REPORT INFORMATION
  Report Type: Spontaneous
  Country: US (occurrence: US)
  Receive Date: 20151210
  Receipt Date: 20170406
  Transmission Date: 20170829
  Serious: Yes (Other)
  Sender: FDA-Public Use
  Company Number: US-JNJFOC-20150923147

PATIENT
  Age: 10 Year
  Sex: Male

DRUGS (5)
  1. RISPERIDONE. [Suspect]
     Active Substance: RISPERIDONE
     Indication: PRODUCT USED FOR UNKNOWN INDICATION
     Route: 048
  2. RISPERIDONE. [Suspect]
     Active Substance: RISPERIDONE
     Indication: PRODUCT USED FOR UNKNOWN INDICATION
     Route: 048
  3. RISPERDAL [Suspect]
     Active Substance: RISPERIDONE
     Indication: ANGER
     Route: 048
     Dates: start: 20120201, end: 20120512
  4. RISPERDAL [Suspect]
     Active Substance: RISPERIDONE
     Indication: ANGER
     Route: 048
     Dates: start: 20100710, end: 20110420
  5. RISPERDAL [Suspect]
     Active Substance: RISPERIDONE
     Indication: ANGER
     Route: 048
     Dates: start: 200811, end: 20100614

REACTIONS (4)
  - Abnormal weight gain [Unknown]
  - Gynaecomastia [Unknown]
  - Product use in unapproved indication [Unknown]
  - Off label use [Unknown]

NARRATIVE: CASE EVENT DATE: 200811
